FAERS Safety Report 5656022-6 (Version None)
Quarter: 2008Q1

REPORT INFORMATION
  Report Type: 
  Country: None (occurrence: None)
  Receive Date: 20080307
  Receipt Date: 20080225
  Transmission Date: 20080703
  Serious: Yes (Other)
  Sender: FDA-Public Use
  Company Number: IL-PFIZER INC-2008018714

PATIENT

DRUGS (1)
  1. SILDENAFIL CITRATE [Suspect]

REACTIONS (1)
  - GLOBAL AMNESIA [None]
